FAERS Safety Report 9683426 (Version 1)
Quarter: 2013Q4

REPORT INFORMATION
  Report Type: Spontaneous
  Country: CA (occurrence: CA)
  Receive Date: 20131112
  Receipt Date: 20131112
  Transmission Date: 20140711
  Serious: Yes (Hospitalization)
  Sender: FDA-Public Use
  Company Number: CA-PFIZER INC-2013321455

PATIENT
  Age: 79 Year
  Sex: Male

DRUGS (9)
  1. HALOPERIDOL [Suspect]
     Indication: DEMENTIA
     Dosage: UNK
  2. HALOPERIDOL [Suspect]
     Indication: AGGRESSION
  3. QUETIAPINE FUMARATE [Suspect]
     Indication: DEMENTIA
     Dosage: UNK
  4. QUETIAPINE FUMARATE [Suspect]
     Indication: AGGRESSION
  5. DONEPEZIL [Concomitant]
  6. TRYPHTOPHAN ^RATIOPHARM^ [Concomitant]
  7. MEMANTINE [Concomitant]
  8. CITALOPRAM [Concomitant]
  9. RISPERDAL [Concomitant]

REACTIONS (1)
  - Delirium [Recovered/Resolved]
